FAERS Safety Report 6387372-6 (Version None)
Quarter: 2009Q3

REPORT INFORMATION
  Report Type: 
  Country: None (occurrence: None)
  Receive Date: 20090930
  Receipt Date: 20090914
  Transmission Date: 20100115
  Serious: Yes (Other)
  Sender: FDA-Public Use
  Company Number: 2008AL009398

PATIENT
  Age: 81 Year
  Sex: Male

DRUGS (17)
  1. DIGOXIN [Suspect]
     Indication: HEART RATE IRREGULAR
     Dosage: 0.125MG, DAILY, PO
     Route: 048
  2. ATENOLOL [Concomitant]
  3. PRILOSEC [Concomitant]
  4. ASPIRIN [Concomitant]
  5. UROVATRAL [Concomitant]
  6. ATIVAN [Concomitant]
  7. VITAMIN E [Concomitant]
  8. COUMADIN [Concomitant]
  9. NITROGLYCERIN [Concomitant]
  10. PLAVIX [Concomitant]
  11. TENORMIN [Concomitant]
  12. FAMOTIDINE [Concomitant]
  13. AMOXICILLIN [Concomitant]
  14. MECLIZINE [Concomitant]
  15. LORAZEPAM [Concomitant]
  16. SIMVASTATIN [Concomitant]
  17. NITROGLYCERIN [Concomitant]

REACTIONS (30)
  - ASTHENIA [None]
  - BACK PAIN [None]
  - BASAL CELL CARCINOMA [None]
  - BENIGN PROSTATIC HYPERPLASIA [None]
  - CATARACT [None]
  - CHEST DISCOMFORT [None]
  - CHEST PAIN [None]
  - CONJUNCTIVITIS [None]
  - CUTIS LAXA [None]
  - DIPLOPIA [None]
  - DIZZINESS [None]
  - DYSPNOEA [None]
  - EXTRASYSTOLES [None]
  - FATIGUE [None]
  - GAIT DISTURBANCE [None]
  - HYPERHIDROSIS [None]
  - HYPOTENSION [None]
  - JOINT SWELLING [None]
  - MEIBOMIANITIS [None]
  - MULTIPLE INJURIES [None]
  - NAUSEA [None]
  - NECK PAIN [None]
  - NOCTURIA [None]
  - ORTHOPNOEA [None]
  - PAIN [None]
  - PALPITATIONS [None]
  - PHOTOPHOBIA [None]
  - SPINAL OSTEOARTHRITIS [None]
  - VISION BLURRED [None]
  - VISUAL IMPAIRMENT [None]
